FAERS Safety Report 4833007-0 (Version None)
Quarter: 2005Q4

REPORT INFORMATION
  Report Type: 
  Country: None (occurrence: None)
  Receive Date: 20051121
  Receipt Date: 20050714
  Transmission Date: 20060501
  Serious: Yes (Hospitalization)
  Sender: FDA-Public Use
  Company Number: US-MERCK-0507USA02050

PATIENT
  Age: 55 Year
  Sex: Female
  Weight: 86 kg

DRUGS (18)
  1. VIOXX [Suspect]
     Indication: MONARTHRITIS
     Route: 048
     Dates: start: 20021127, end: 20030812
  2. VIOXX [Suspect]
     Route: 048
     Dates: start: 20021127, end: 20030812
  3. ACETAMINOPHEN [Concomitant]
     Route: 065
  4. GASTROINTESTINAL PREPARATIONS (UNSPECIFIED) [Concomitant]
     Route: 065
  5. ASPIRIN [Concomitant]
     Route: 065
  6. ATENOLOL MSD [Concomitant]
     Route: 065
  7. CILOXAN [Concomitant]
     Route: 065
  8. FUROSEMIDE [Concomitant]
     Route: 065
  9. GLIPIZIDE [Concomitant]
     Route: 065
  10. GLUCERNA [Concomitant]
     Route: 065
  11. PULMOCARE [Concomitant]
     Route: 065
  12. GLUCOTROL [Concomitant]
     Route: 065
  13. GLYBURIDE [Concomitant]
     Route: 065
  14. ISOSORBIDE DINITRATE [Concomitant]
     Route: 065
  15. VITAMINS (UNSPECIFIED) [Concomitant]
     Route: 065
  16. NASONEX [Concomitant]
     Route: 065
  17. PLENDIL [Concomitant]
     Route: 065
  18. RIMSO-50 [Concomitant]
     Route: 065

REACTIONS (5)
  - BLINDNESS [None]
  - BLOOD GLUCOSE INCREASED [None]
  - CEREBROVASCULAR ACCIDENT [None]
  - MUSCULOSKELETAL CHEST PAIN [None]
  - MYOCARDIAL INFARCTION [None]
